FAERS Safety Report 7682950-6 (Version None)
Quarter: 2011Q3

REPORT INFORMATION
  Report Type: 
  Country: None (occurrence: None)
  Receive Date: 20110815
  Receipt Date: 20110807
  Transmission Date: 20111222
  Serious: Yes (Hospitalization)
  Sender: FDA-Public Use
  Company Number: US-US-EMD SERONO, INC.-7072677

PATIENT
  Sex: Female

DRUGS (3)
  1. REBIF [Suspect]
     Indication: MULTIPLE SCLEROSIS
     Route: 058
     Dates: start: 20100305, end: 20110701
  2. NON-STEROIDAL ANTIINFLAMMATORY DRUGS [Concomitant]
     Indication: PREMEDICATION
  3. REBIF [Suspect]
     Route: 058
     Dates: start: 20110801, end: 20110805

REACTIONS (6)
  - SWELLING [None]
  - INTERVERTEBRAL DISC DEGENERATION [None]
  - MALAISE [None]
  - INTERVERTEBRAL DISC PROTRUSION [None]
  - INFLUENZA LIKE ILLNESS [None]
  - EATING DISORDER [None]
